FAERS Safety Report 9589295 (Version 2)
Quarter: 2013Q4

REPORT INFORMATION
  Report Type: Spontaneous
  Country: US (occurrence: US)
  Receive Date: 20131003
  Receipt Date: 20131003
  Transmission Date: 20140711
  Serious: No
  Sender: FDA-Public Use
  Company Number: US-AMGEN-USASP2012068212

PATIENT
  Age: 39 Year
  Sex: Female

DRUGS (2)
  1. ENBREL [Suspect]
     Indication: RHEUMATOID ARTHRITIS
     Dosage: 25 MG, BIWEEKLY
     Route: 058
     Dates: start: 20110513, end: 20120907
  2. CELLCEPT                           /01275102/ [Concomitant]
     Dosage: 500 UNK, QD
     Route: 048
     Dates: start: 20120722, end: 20120907

REACTIONS (2)
  - Productive cough [Recovered/Resolved]
  - Red blood cell sedimentation rate increased [Not Recovered/Not Resolved]
